FAERS Safety Report 20230983 (Version 3)
Quarter: 2022Q1

REPORT INFORMATION
  Report Type: Report from Study
  Country: US (occurrence: US)
  Receive Date: 20211227
  Receipt Date: 20220106
  Transmission Date: 20220423
  Serious: No
  Sender: FDA-Public Use
  Company Number: US-NOVARTISTESTPH-NVSC2021US296096

PATIENT
  Sex: Male

DRUGS (1)
  1. ENTRESTO [Suspect]
     Active Substance: SACUBITRIL\VALSARTAN
     Indication: Product used for unknown indication
     Dosage: 50 MG, BID (24/26 MG)
     Route: 048
     Dates: start: 2021

REACTIONS (5)
  - Upper respiratory tract infection [Recovering/Resolving]
  - Throat clearing [Unknown]
  - Cough [Unknown]
  - Diarrhoea [Unknown]
  - Product dose omission issue [Unknown]
